FAERS Safety Report 17848280 (Version 2)
Quarter: 2020Q3

REPORT INFORMATION
  Report Type: Spontaneous
  Country: US (occurrence: US)
  Receive Date: 20200602
  Receipt Date: 20200803
  Transmission Date: 20201103
  Serious: Yes (Hospitalization)
  Sender: FDA-Public Use
  Company Number: US-BRISTOL-MYERS SQUIBB COMPANY-BMS-2020-042705

PATIENT
  Sex: Female

DRUGS (2)
  1. ORENCIA [Suspect]
     Active Substance: ABATACEPT
     Indication: RHEUMATOID ARTHRITIS
     Dosage: 125 MILLIGRAM,  ORENCIA CLICKJECT AUTOINJ
     Route: 058
     Dates: start: 20191105
  2. ORENCIA [Suspect]
     Active Substance: ABATACEPT
     Indication: COLITIS

REACTIONS (1)
  - Hospitalisation [Unknown]
